FAERS Safety Report 9522615 (Version 3)
Quarter: 2013Q3

REPORT INFORMATION
  Report Type: Spontaneous
  Country: US (occurrence: US)
  Receive Date: 20130913
  Receipt Date: 20130923
  Transmission Date: 20140515
  Serious: Yes (Hospitalization)
  Sender: FDA-Public Use
  Company Number: US-BAXTER-2013BAX034827

PATIENT
  Age: 71 Year
  Sex: Male

DRUGS (2)
  1. DIANEAL LOW CALCIUM [Suspect]
     Indication: PERITONEAL DIALYSIS
     Route: 033
     Dates: end: 20130825
  2. DIANEAL LOW CALCIUM [Suspect]
     Route: 033
     Dates: start: 20130828

REACTIONS (3)
  - Coronary artery occlusion [Recovered/Resolved]
  - Asthenia [Recovering/Resolving]
  - Post procedural complication [Recovering/Resolving]
